FAERS Safety Report 6178060-X (Version None)
Quarter: 2009Q2

REPORT INFORMATION
  Report Type: 
  Country: None (occurrence: None)
  Receive Date: 20090504
  Receipt Date: 20090128
  Transmission Date: 20091009
  Serious: No
  Sender: FDA-Public Use
  Company Number: US-ALEXION-A200900078

PATIENT
  Sex: Female

DRUGS (7)
  1. SOLIRIS [Suspect]
     Indication: PAROXYSMAL NOCTURNAL HAEMOGLOBINURIA
     Dosage: 600 MG, QWK X4
     Dates: start: 20070709
  2. SOLIRIS [Suspect]
     Dosage: 900 MG, Q2WK
     Dates: start: 20070806
  3. SOLIRIS [Suspect]
     Dosage: 900 MG, Q21D
     Dates: start: 20080701
  4. SOLIRIS [Suspect]
     Dosage: 900 MG, Q2WK
     Dates: start: 20090115
  5. FOLIC ACID [Concomitant]
     Dosage: 2 MG, QD
  6. MULTIVITAMIN                       /00831701/ [Concomitant]
     Dosage: UNK
  7. ASPIRIN [Concomitant]
     Dosage: 81 MG, QD

REACTIONS (3)
  - BLOOD LACTATE DEHYDROGENASE INCREASED [None]
  - CHROMATURIA [None]
  - FATIGUE [None]
